FAERS Safety Report 13817858 (Version 1)
Quarter: 2017Q3

REPORT INFORMATION
  Report Type: Spontaneous
  Country: US (occurrence: US)
  Receive Date: 20170731
  Receipt Date: 20170731
  Transmission Date: 20171127
  Serious: No
  Sender: FDA-Public Use
  Company Number: US-ROCHE-704622

PATIENT
  Age: 80 Year
  Sex: Female

DRUGS (1)
  1. BONIVA [Suspect]
     Active Substance: IBANDRONATE SODIUM
     Indication: OSTEOPOROSIS
     Dosage: DOSE: 3 MG/ 3ML
     Route: 042
     Dates: start: 20081110, end: 20100506

REACTIONS (2)
  - Erythema [Recovering/Resolving]
  - Injection site discomfort [Unknown]

NARRATIVE: CASE EVENT DATE: 20100508
